FAERS Safety Report 10309598 (Version 1)
Quarter: 2014Q3

REPORT INFORMATION
  Report Type: Spontaneous
  Country: US (occurrence: US)
  Receive Date: 20140717
  Receipt Date: 20140717
  Transmission Date: 20150326
  Serious: Yes (Other)
  Sender: FDA-Public Use
  Company Number: US-UCBSA-2014005247

PATIENT
  Age: 21 Year
  Sex: Female
  Weight: 62.5 kg

DRUGS (10)
  1. FOLVITE [Concomitant]
     Active Substance: FOLIC ACID
     Dosage: 1 MG
  2. OS-CAL 500 + D [Concomitant]
     Dosage: 500MG/1250MG (400 UNITS), BID
  3. OS-CAL 500 + D [Concomitant]
     Dosage: 500MG /1250MG (400 UNITS) 2X/DAY (BID)
     Route: 048
  4. CHOLECALCIFEROL [Concomitant]
     Active Substance: CHOLECALCIFEROL
     Dosage: 400 UNITS
     Route: 048
     Dates: start: 20140521, end: 20140630
  5. CIMZIA [Suspect]
     Active Substance: CERTOLIZUMAB PEGOL
     Indication: PSORIATIC ARTHROPATHY
     Dosage: 200 MG, EV 2 WEEKS(QOW)
     Route: 058
     Dates: start: 201306, end: 20140609
  6. CATAFLAM [Concomitant]
     Active Substance: DICLOFENAC POTASSIUM
     Indication: PSORIATIC ARTHROPATHY
     Dosage: 50 MG, 3X/WEEK
     Route: 048
     Dates: start: 201306
  7. MULTIVITAMIN [Concomitant]
     Active Substance: VITAMINS
     Indication: PREGNANCY
     Dosage: DAILY
     Route: 048
  8. ALBUTEROL. [Concomitant]
     Active Substance: ALBUTEROL
     Indication: ASTHMA
     Dosage: 2.5 MG, EVERY 6 HOURS, AS NEEDED (PRN)
     Route: 048
  9. XYLOCAINE [Concomitant]
     Active Substance: LIDOCAINE HYDROCHLORIDE
     Dosage: 2% SOLUTION
  10. GILDESS FE [Concomitant]
     Active Substance: ETHINYL ESTRADIOL\NORETHINDRONE
     Dosage: 1-20 MG-MCG, 1 TABLET BY MOUTH DAILY

REACTIONS (3)
  - Bursitis [Unknown]
  - Twin pregnancy [Unknown]
  - Abortion spontaneous [Recovered/Resolved]

NARRATIVE: CASE EVENT DATE: 2014
